FAERS Safety Report 10458457 (Version 1)
Quarter: 2014Q3

REPORT INFORMATION
  Report Type: Spontaneous
  Country: US (occurrence: None)
  Receive Date: 20140916
  Receipt Date: 20140916
  Transmission Date: 20150326
  Serious: Yes (Other)
  Sender: FDA-Public Use
  Company Number: None

PATIENT
  Age: 56 Year
  Sex: Male

DRUGS (13)
  1. CYCLOSPORIN [Concomitant]
     Active Substance: CYCLOSPORINE
  2. OXYCODONE [Concomitant]
     Active Substance: OXYCODONE
  3. ASA [Concomitant]
     Active Substance: ASPIRIN
  4. METOPROLOL TARTRATE. [Concomitant]
     Active Substance: METOPROLOL TARTRATE
  5. OMEGA 3 [Concomitant]
     Active Substance: OMEGA-3 FATTY ACIDS
  6. SOFOSBUVIR [Concomitant]
     Active Substance: SOFOSBUVIR
  7. SIMEPREVIR SODIUM [Suspect]
     Active Substance: SIMEPREVIR SODIUM
     Indication: HEPATITIS C
     Dosage: 150MG, QHS/BEDTIME, ORAL
     Route: 048
     Dates: start: 20140417
  8. MVT [Concomitant]
  9. SERTRALINE [Concomitant]
     Active Substance: SERTRALINE HYDROCHLORIDE
  10. UROSODIOL [Concomitant]
  11. OMEPRAZOLE. [Concomitant]
     Active Substance: OMEPRAZOLE
  12. FISH OIL [Concomitant]
     Active Substance: FISH OIL
  13. PREDNISONE. [Concomitant]
     Active Substance: PREDNISONE

REACTIONS (3)
  - Chills [None]
  - Blister [None]
  - Pain [None]

NARRATIVE: CASE EVENT DATE: 20140523
